FAERS Safety Report 7987178-8 (Version None)
Quarter: 2011Q4

REPORT INFORMATION
  Report Type: 
  Country: None (occurrence: None)
  Receive Date: 20111216
  Receipt Date: 20111005
  Transmission Date: 20120403
  Serious: No
  Sender: FDA-Public Use
  Company Number: US-BRISTOL-MYERS SQUIBB COMPANY-16135550

PATIENT
  Sex: Female

DRUGS (2)
  1. PRISTIQ [Suspect]
     Indication: AFFECTIVE DISORDER
  2. ABILIFY [Suspect]
     Indication: AFFECTIVE DISORDER

REACTIONS (1)
  - OEDEMA PERIPHERAL [None]
